FAERS Safety Report 4440704-8 (Version None)
Quarter: 2004Q3

REPORT INFORMATION
  Report Type: 
  Country: None (occurrence: None)
  Receive Date: 20040728
  Receipt Date: 20040504
  Transmission Date: 20050211
  Serious: No
  Sender: FDA-Public Use
  Company Number: USA040258423

PATIENT
  Age: 8 Year
  Sex: Male
  Weight: 29 kg

DRUGS (4)
  1. STRATTERA [Suspect]
     Indication: ATTENTION DEFICIT/HYPERACTIVITY DISORDER
     Dosage: 40 MG/1 IN THE MORNING
     Dates: start: 20040201
  2. ALBUTEROL [Concomitant]
  3. MULTIVITAMIN [Concomitant]
  4. PREDNISONE [Concomitant]

REACTIONS (14)
  - ASTHMA [None]
  - CHEST PAIN [None]
  - CONSTIPATION [None]
  - DECREASED APPETITE [None]
  - DIZZINESS [None]
  - FATIGUE [None]
  - FEELING ABNORMAL [None]
  - IMMUNE SYSTEM DISORDER [None]
  - INSOMNIA [None]
  - MOOD SWINGS [None]
  - NASOPHARYNGITIS [None]
  - SOMNOLENCE [None]
  - SYNCOPE [None]
  - WEIGHT DECREASED [None]
